FAERS Safety Report 5519611-5 (Version None)
Quarter: 2007Q4

REPORT INFORMATION
  Report Type: 
  Country: None (occurrence: None)
  Receive Date: 20071114
  Receipt Date: 20071105
  Transmission Date: 20080405
  Serious: Yes (Death)
  Sender: FDA-Public Use
  Company Number: 2007BI021825

PATIENT
  Age: 43 Year
  Sex: Female

DRUGS (14)
  1. NATALIZUMAB [Suspect]
     Indication: MULTIPLE SCLEROSIS
     Dosage: 300 MG;QM;IV
     Route: 042
     Dates: start: 20061023, end: 20071010
  2. BIRTH CONTROL PILLS [Concomitant]
  3. EFFEXOR [Concomitant]
  4. AMBIEN [Concomitant]
  5. HYDROCODONE W/APAP [Concomitant]
  6. ZANAFLEX [Concomitant]
  7. PROVIGIL [Concomitant]
  8. LASIX [Concomitant]
  9. VITAMIN E [Concomitant]
  10. VITAMIN B-12 [Concomitant]
  11. ENABLEX [Concomitant]
  12. ZOVIRAX [Concomitant]
  13. POTASSIUM CHLORIDE [Concomitant]
  14. AVONEX [Concomitant]

REACTIONS (15)
  - ABASIA [None]
  - BASOPHIL PERCENTAGE INCREASED [None]
  - BLOOD CREATINE DECREASED [None]
  - BLOOD UREA DECREASED [None]
  - CARDIAC FAILURE CONGESTIVE [None]
  - CHOLESTEROL GRANULOMA [None]
  - DEPRESSION [None]
  - INTERVERTEBRAL DISC DEGENERATION [None]
  - MEAN CELL HAEMOGLOBIN INCREASED [None]
  - MONOCYTE PERCENTAGE DECREASED [None]
  - NEUTROPHIL COUNT INCREASED [None]
  - NEUTROPHIL PERCENTAGE INCREASED [None]
  - PALLANAESTHESIA [None]
  - QUADRIPARESIS [None]
  - UPPER RESPIRATORY TRACT INFECTION [None]
